FAERS Safety Report 9840237 (Version 1)
Quarter: 2013Q4

REPORT INFORMATION
  Report Type: Spontaneous
  Country: US (occurrence: None)
  Receive Date: 20131223
  Receipt Date: 20131223
  Transmission Date: 20140711
  Serious: No
  Sender: FDA-Public Use
  Company Number: 220092LEO

PATIENT
  Age: 54 Year
  Sex: Male

DRUGS (1)
  1. PICATO [Suspect]
     Indication: PRODUCT USED FOR UNKNOWN INDICATION
     Dosage: (1 IN 1 D)
     Dates: start: 20130105, end: 20130107

REACTIONS (3)
  - Application site erythema [None]
  - Application site exfoliation [None]
  - Drug administered at inappropriate site [None]
